FAERS Safety Report 6829112-X (Version None)
Quarter: 2010Q3

REPORT INFORMATION
  Report Type: 
  Country: None (occurrence: None)
  Receive Date: 20100709
  Receipt Date: 20070228
  Transmission Date: 20110219
  Serious: No
  Sender: FDA-Public Use
  Company Number: US-PFIZER INC-2007015654

PATIENT
  Sex: Female

DRUGS (5)
  1. CHANTIX [Suspect]
     Dates: start: 20070220
  2. INSULIN [Concomitant]
  3. ATACAND [Concomitant]
  4. VITAMINS [Concomitant]
  5. BUSPAR [Concomitant]

REACTIONS (3)
  - NASOPHARYNGITIS [None]
  - NAUSEA [None]
  - VOMITING [None]
